FAERS Safety Report 5993743-X (Version None)
Quarter: 2008Q4

REPORT INFORMATION
  Report Type: 
  Country: None (occurrence: None)
  Receive Date: 20081212
  Receipt Date: 20081202
  Transmission Date: 20090506
  Serious: Yes (Hospitalization, Other)
  Sender: FDA-Public Use
  Company Number: HR-NOVOPROD-281598

PATIENT
  Sex: Female
  Weight: 2.4 kg

DRUGS (4)
  1. LEVEMIR [Suspect]
     Indication: TYPE 1 DIABETES MELLITUS
     Dosage: 12 U, UNK
     Route: 064
     Dates: start: 20080710
  2. LEVEMIR [Suspect]
     Dosage: 18 IU, QD
     Route: 064
     Dates: start: 20080710
  3. ACTRAPID [Suspect]
     Indication: TYPE 1 DIABETES MELLITUS
     Dosage: 28 IU, UNK
     Route: 064
     Dates: start: 20080710
  4. ACTRAPID [Suspect]
     Dosage: 34 IU, QD
     Route: 064
     Dates: start: 20080710

REACTIONS (1)
  - PREMATURE BABY [None]
